FAERS Safety Report 5386701-X (Version None)
Quarter: 2007Q3

REPORT INFORMATION
  Report Type: 
  Country: None (occurrence: None)
  Receive Date: 20070713
  Receipt Date: 20070703
  Transmission Date: 20080115
  Serious: Yes (Other)
  Sender: FDA-Public Use
  Company Number: BR-ROCHE-499166

PATIENT
  Age: 28 Year
  Sex: Female

DRUGS (2)
  1. RIVOTRIL [Suspect]
     Indication: INSOMNIA
     Route: 048
     Dates: start: 20060201
  2. UNSPECIFIED DRUG [Concomitant]
     Dates: start: 20060201

REACTIONS (2)
  - MENTAL DISORDER [None]
  - PREGNANCY [None]
